FAERS Safety Report 9234366 (Version 1)
Quarter: 2013Q2

REPORT INFORMATION
  Report Type: Spontaneous
  Country: US (occurrence: US)
  Receive Date: 20130416
  Receipt Date: 20130416
  Transmission Date: 20140414
  Serious: Yes (Other)
  Sender: FDA-Public Use
  Company Number: US-ACTAVIS-2013-06086

PATIENT
  Sex: Female

DRUGS (1)
  1. CLONAZEPAM [Suspect]
     Indication: ABNORMAL BEHAVIOUR
     Dosage: 0.5 MG, BID
     Route: 065

REACTIONS (3)
  - Convulsion [Unknown]
  - Drug level changed [Unknown]
  - Product formulation issue [None]
